FAERS Safety Report 15058155 (Version 1)
Quarter: 2018Q2

REPORT INFORMATION
  Report Type: Report from Study
  Country: JP (occurrence: JP)
  Receive Date: 20180625
  Receipt Date: 20180625
  Transmission Date: 20180711
  Serious: Yes (Other)
  Sender: FDA-Public Use
  Company Number: JP-ROCHE-2143286

PATIENT

DRUGS (5)
  1. FOLIC ACID. [Concomitant]
     Active Substance: FOLIC ACID
  2. CARBOPLATIN. [Suspect]
     Active Substance: CARBOPLATIN
     Indication: NON-SMALL CELL LUNG CANCER
     Dosage: AREA UNDER THE CURVE=5 MG/ML/MIN
     Route: 065
  3. PEMETREXED. [Suspect]
     Active Substance: PEMETREXED
     Indication: NON-SMALL CELL LUNG CANCER
     Route: 065
  4. VITAMIN B12 [Concomitant]
     Active Substance: CYANOCOBALAMIN
  5. BEVACIZUMAB. [Suspect]
     Active Substance: BEVACIZUMAB
     Indication: NON-SMALL CELL LUNG CANCER
     Route: 065

REACTIONS (10)
  - Febrile neutropenia [Unknown]
  - Large intestinal haemorrhage [Unknown]
  - Alanine aminotransferase increased [Unknown]
  - Hypertension [Unknown]
  - Thrombocytopenia [Unknown]
  - Neutropenia [Unknown]
  - Diverticulitis [Unknown]
  - Leukopenia [Unknown]
  - Anaemia [Unknown]
  - Hyponatraemia [Unknown]
